FAERS Safety Report 4478108-4 (Version None)
Quarter: 2004Q3

REPORT INFORMATION
  Report Type: 
  Country: None (occurrence: None)
  Receive Date: 20040923
  Receipt Date: 20040628
  Transmission Date: 20050211
  Serious: No
  Sender: FDA-Public Use
  Company Number: USA040671182

PATIENT
  Age: 79 Year
  Sex: Female
  Weight: 66 kg

DRUGS (12)
  1. FORTEO [Suspect]
     Indication: BONE DENSITY DECREASED
     Dosage: 20 UG/1 DAY
     Dates: start: 20040101
  2. NASONEX [Concomitant]
  3. COMBIVENT [Concomitant]
  4. CELEBREX [Concomitant]
  5. NEXIUM [Concomitant]
  6. POTASSIUM CHLORIDE [Concomitant]
  7. SYNTHROID [Concomitant]
  8. SINGULAIR (MONTELUKAST) [Concomitant]
  9. ALLEGRA [Concomitant]
  10. LEXAPRO [Concomitant]
  11. HYDRODIURIL [Concomitant]
  12. NORVASC [Concomitant]

REACTIONS (8)
  - FEELING ABNORMAL [None]
  - INSOMNIA [None]
  - MUSCLE CRAMP [None]
  - MYALGIA [None]
  - THIRST [None]
  - TREMOR [None]
  - VISION BLURRED [None]
  - WEIGHT DECREASED [None]
